FAERS Safety Report 7686317-6 (Version None)
Quarter: 2011Q3

REPORT INFORMATION
  Report Type: 
  Country: None (occurrence: None)
  Receive Date: 20110816
  Receipt Date: 20110727
  Transmission Date: 20111222
  Serious: Yes (Other)
  Sender: FDA-Public Use
  Company Number: US-GLAXOSMITHKLINE-A0759670A

PATIENT
  Age: 50 Year
  Sex: Female
  Weight: 135.5 kg

DRUGS (19)
  1. ELAVIL [Concomitant]
  2. PRAVACHOL [Concomitant]
  3. GLUCOPHAGE [Concomitant]
     Dates: start: 20000101
  4. REGLAN [Concomitant]
  5. DIABETA [Concomitant]
     Dates: start: 20000101
  6. NEXIUM [Concomitant]
  7. FLOVENT [Concomitant]
  8. PRILOSEC [Concomitant]
  9. DIOVAN [Concomitant]
  10. CELEBREX [Concomitant]
  11. AVANDIA [Suspect]
     Indication: TYPE 2 DIABETES MELLITUS
     Dosage: 8MG TWICE PER DAY
     Route: 065
     Dates: start: 19990101, end: 20040101
  12. METFORMIN HCL [Concomitant]
     Dates: start: 20000101
  13. GLUCOVANCE [Concomitant]
  14. ATARAX [Concomitant]
  15. ZANTAC [Concomitant]
  16. LASIX [Concomitant]
  17. FLONASE [Concomitant]
  18. LORTAB [Concomitant]
  19. LIPITOR [Concomitant]

REACTIONS (2)
  - CARDIAC FAILURE CONGESTIVE [None]
  - MYOCARDIAL INFARCTION [None]
